FAERS Safety Report 20676944 (Version 1)
Quarter: 2022Q2

REPORT INFORMATION
  Report Type: Other
  Country: MY (occurrence: None)
  Receive Date: 20220406
  Receipt Date: 20220406
  Transmission Date: 20220720
  Serious: Yes (Hospitalization, Other)
  Sender: FDA-Public Use
  Company Number: MY-Umedica-000217

PATIENT
  Age: 58 Year
  Sex: Male

DRUGS (7)
  1. ATORVASTATIN [Interacting]
     Active Substance: ATORVASTATIN
     Indication: Cardiac failure
     Dosage: 80 MG DAILY
     Dates: end: 20210114
  2. SACUBITRIL\VALSARTAN [Interacting]
     Active Substance: SACUBITRIL\VALSARTAN
     Indication: Cardiac failure
     Dosage: 49MG/51MG TWICE DAILY
  3. ASPIRIN [Concomitant]
     Active Substance: ASPIRIN
     Indication: Cardiac failure
     Dosage: 100MG DAILY
  4. PERINDOPRIL [Concomitant]
     Active Substance: PERINDOPRIL
     Indication: Cardiac failure
     Dosage: 4 MG DAILY
     Dates: end: 20210107
  5. BISOPROLOL [Concomitant]
     Active Substance: BISOPROLOL
     Indication: Cardiac failure
     Dosage: 5MG DAILY
  6. FUROSEMIDE [Concomitant]
     Active Substance: FUROSEMIDE
     Indication: Cardiac failure
     Dosage: 40MG TWICE DAILY
  7. SPIRONOLACTONE [Concomitant]
     Active Substance: SPIRONOLACTONE
     Indication: Cardiac failure
     Dosage: 25MG DAILY

REACTIONS (3)
  - Acute kidney injury [Recovered/Resolved]
  - Condition aggravated [Recovered/Resolved]
  - Drug interaction [Unknown]
